FAERS Safety Report 24466325 (Version 1)
Quarter: 2024Q4

REPORT INFORMATION
  Report Type: Report from Study
  Country: US (occurrence: US)
  Receive Date: 20241018
  Receipt Date: 20241018
  Transmission Date: 20250115
  Serious: No
  Sender: ROCHE
  Company Number: US-ROCHE-3540949

PATIENT
  Age: 31 Year
  Sex: Female
  Weight: 64.9 kg

DRUGS (12)
  1. XOLAIR [Suspect]
     Active Substance: OMALIZUMAB
     Indication: Asthma
     Dosage: LAST INJECTION RECEIVED ON 20/MAR/2024.
     Route: 058
     Dates: start: 20190220
  2. XOLAIR [Suspect]
     Active Substance: OMALIZUMAB
     Indication: Asthma
     Dosage: 150 MG/ML
     Route: 058
     Dates: start: 20230118
  3. XOLAIR [Suspect]
     Active Substance: OMALIZUMAB
     Dosage: 75 MG/0.5 ML
     Route: 058
     Dates: start: 20230118
  4. XOLAIR [Suspect]
     Active Substance: OMALIZUMAB
     Dosage: 150 MG/ML
     Route: 058
     Dates: start: 20230929
  5. XOLAIR [Suspect]
     Active Substance: OMALIZUMAB
     Dosage: 75 MG/0.5 ML
     Route: 058
     Dates: start: 20230929
  6. XOLAIR [Suspect]
     Active Substance: OMALIZUMAB
     Dosage: 150 MG/ML
     Route: 058
     Dates: start: 20231130
  7. XOLAIR [Suspect]
     Active Substance: OMALIZUMAB
     Dosage: 75 MG/0.5 ML
     Route: 058
     Dates: start: 20231130
  8. PROVENTIL HFA [Concomitant]
     Active Substance: ALBUTEROL SULFATE
     Dosage: 2 PUFFS EVERY 4 HOURS
  9. ZYRTEC [Concomitant]
     Active Substance: CETIRIZINE HYDROCHLORIDE
  10. AUVI-Q [Concomitant]
     Active Substance: EPINEPHRINE
  11. NEXIUM [Concomitant]
     Active Substance: ESOMEPRAZOLE MAGNESIUM
     Dosage: 1 CAPSULE BY MOUTH EVERY DAY
  12. XOPENEX HFA [Concomitant]
     Active Substance: LEVALBUTEROL TARTRATE

REACTIONS (2)
  - Off label use [Unknown]
  - No adverse event [Unknown]
